FAERS Safety Report 25769040 (Version 1)
Quarter: 2025Q3

REPORT INFORMATION
  Report Type: Spontaneous
  Country: EU (occurrence: EU)
  Receive Date: 20250905
  Receipt Date: 20250905
  Transmission Date: 20251020
  Serious: Yes (Other)
  Sender: ELI LILLY AND COMPANY
  Company Number: EU-ELI_LILLY_AND_COMPANY-IT202508027903

PATIENT

DRUGS (2)
  1. CYRAMZA [Suspect]
     Active Substance: RAMUCIRUMAB
     Indication: Product used for unknown indication
     Route: 065
     Dates: start: 202410, end: 202412
  2. PACLITAXEL [Suspect]
     Active Substance: PACLITAXEL
     Indication: Product used for unknown indication
     Route: 065

REACTIONS (1)
  - Vascular occlusion [Unknown]
